FAERS Safety Report 17488019 (Version 1)
Quarter: 2020Q1

REPORT INFORMATION
  Report Type: Spontaneous
  Country: US (occurrence: US)
  Receive Date: 20200220
  Receipt Date: 20200220
  Transmission Date: 20200409
  Serious: Yes (Hospitalization)
  Sender: FDA-Public Use
  Company Number: None

PATIENT
  Age: 66 Year
  Sex: Female

DRUGS (34)
  1. CELEBREX [Concomitant]
     Active Substance: CELECOXIB
  2. CIPROFLOXACN [Concomitant]
     Active Substance: CIPROFLOXACIN
  3. METHYLPRED [Concomitant]
     Active Substance: METHYLPREDNISOLONE
  4. PROMACTA [Suspect]
     Active Substance: ELTROMBOPAG OLAMINE
     Indication: THROMBOCYTOPENIC PURPURA
     Route: 048
     Dates: start: 20180607
  5. DIOVAN [Concomitant]
     Active Substance: VALSARTAN
  6. FENTANYL DIS [Concomitant]
  7. LYRICA [Concomitant]
     Active Substance: PREGABALIN
  8. NIAPSAN [Concomitant]
  9. SULFASALAZINE DELAYED-RELEASE [Concomitant]
     Active Substance: SULFASALAZINE
  10. VIMOVO [Concomitant]
     Active Substance: ESOMEPRAZOLE MAGNESIUM\NAPROXEN
  11. ADVAIR DISKU AER [Concomitant]
  12. NOVOLOG MIX FLEXPEN [Concomitant]
  13. SMZ/TMP DS [Concomitant]
     Active Substance: SULFAMETHOXAZOLE\TRIMETHOPRIM
  14. TIZANIDINE. [Concomitant]
     Active Substance: TIZANIDINE
  15. TRAMADOL HCL [Concomitant]
     Active Substance: TRAMADOL HYDROCHLORIDE
  16. TRIAMCINOLON CRE [Concomitant]
  17. ZOLENE HC [Concomitant]
  18. ASCEMSIA [Concomitant]
  19. CALCIUM [Concomitant]
     Active Substance: CALCIUM
  20. DURAGESIC DIS [Concomitant]
  21. HYDROMORPHON [Concomitant]
     Active Substance: HYDROMORPHONE
  22. MOMETASONE [Concomitant]
     Active Substance: MOMETASONE
  23. NOVOLOG [Concomitant]
     Active Substance: INSULIN ASPART
  24. PROAIR HFA [Concomitant]
     Active Substance: ALBUTEROL SULFATE
  25. CEPHLAEXIN [Concomitant]
  26. MUTLI-VITAMIN [Concomitant]
  27. PREDNISONE. [Concomitant]
     Active Substance: PREDNISONE
  28. ALPRAZOLAM. [Concomitant]
     Active Substance: ALPRAZOLAM
  29. HUMIRA [Concomitant]
     Active Substance: ADALIMUMAB
  30. LEVEMIR [Concomitant]
     Active Substance: INSULIN DETEMIR
  31. METFORMIN [Concomitant]
     Active Substance: METFORMIN HYDROCHLORIDE
  32. ZETIA [Concomitant]
     Active Substance: EZETIMIBE
  33. AZITHROMYCIN ANHYDROUS. [Concomitant]
     Active Substance: AZITHROMYCIN ANHYDROUS
  34. FREESTYLE TES LITE [Concomitant]

REACTIONS (4)
  - Blood glucose increased [None]
  - Diarrhoea [None]
  - Hepatic failure [None]
  - Pneumothorax [None]

NARRATIVE: CASE EVENT DATE: 20191217
